FAERS Safety Report 14947753 (Version 3)
Quarter: 2018Q2

REPORT INFORMATION
  Report Type: Report from Study
  Country: None (occurrence: BE)
  Receive Date: 20180529
  Receipt Date: 20180604
  Transmission Date: 20180711
  Serious: Yes (Hospitalization)
  Sender: FDA-Public Use
  Company Number: BE-ABBVIE-18K-013-2367785-00

PATIENT
  Sex: Male

DRUGS (24)
  1. DUODOPA [Suspect]
     Active Substance: CARBIDOPA\LEVODOPA
     Indication: PARKINSON^S DISEASE
     Dosage: MD=5.3ML, CD=1.9ML/HR DURING 16HRS , ED=1.8ML
     Route: 050
     Dates: start: 20140902, end: 20140904
  2. DUODOPA [Suspect]
     Active Substance: CARBIDOPA\LEVODOPA
     Dosage: MD=2.4ML, CD=1.6(AM) - 2.4(PM)ML/HR DURING 16HRS , ED=1.8ML
     Route: 050
     Dates: start: 20180523
  3. XADAGO [Concomitant]
     Active Substance: SAFINAMIDE MESYLATE
  4. DEANXIT [Concomitant]
     Active Substance: FLUPENTIXOL DIHYDROCHLORIDE\MELITRACEN HYDROCHLORIDE
     Indication: PRODUCT USED FOR UNKNOWN INDICATION
  5. NOBITEN [Concomitant]
     Active Substance: NEBIVOLOL
     Indication: PRODUCT USED FOR UNKNOWN INDICATION
  6. AZILECT [Concomitant]
     Active Substance: RASAGILINE MESYLATE
     Indication: PRODUCT USED FOR UNKNOWN INDICATION
  7. PANTOMED [Concomitant]
     Indication: PARKINSON^S DISEASE
  8. TEMESTA (LORAZEPAM) [Concomitant]
     Active Substance: LORAZEPAM
  9. PROLOPA HBS [Concomitant]
     Active Substance: BENSERAZIDE\LEVODOPA
  10. ALPRAZOLAM. [Concomitant]
     Active Substance: ALPRAZOLAM
  11. XADAGO [Concomitant]
     Active Substance: SAFINAMIDE MESYLATE
     Indication: PRODUCT USED FOR UNKNOWN INDICATION
  12. DEANXIT [Concomitant]
     Active Substance: FLUPENTIXOL DIHYDROCHLORIDE\MELITRACEN HYDROCHLORIDE
  13. NOBITEN [Concomitant]
     Active Substance: NEBIVOLOL
  14. CYMBALTA [Concomitant]
     Active Substance: DULOXETINE HYDROCHLORIDE
     Indication: PRODUCT USED FOR UNKNOWN INDICATION
  15. CYMBALTA [Concomitant]
     Active Substance: DULOXETINE HYDROCHLORIDE
  16. CLOPIDOGREL [Concomitant]
     Active Substance: CLOPIDOGREL BISULFATE
     Indication: PRODUCT USED FOR UNKNOWN INDICATION
  17. ALPRAZOLAM. [Concomitant]
     Active Substance: ALPRAZOLAM
     Indication: PRODUCT USED FOR UNKNOWN INDICATION
  18. AZILECT [Concomitant]
     Active Substance: RASAGILINE MESYLATE
  19. DUODOPA [Suspect]
     Active Substance: CARBIDOPA\LEVODOPA
     Dosage: DOSES CONTINUOUSLY MONITORED AND ADAPTED
     Route: 050
     Dates: start: 20140904, end: 20180523
  20. PANTOMED [Concomitant]
  21. TEMESTA (LORAZEPAM) [Concomitant]
     Active Substance: LORAZEPAM
     Indication: PRODUCT USED FOR UNKNOWN INDICATION
  22. TRAZODON [Concomitant]
     Active Substance: TRAZODONE HYDROCHLORIDE
     Indication: PRODUCT USED FOR UNKNOWN INDICATION
  23. TRAZODON [Concomitant]
     Active Substance: TRAZODONE HYDROCHLORIDE
  24. PROLOPA HBS [Concomitant]
     Active Substance: BENSERAZIDE\LEVODOPA
     Indication: PARKINSON^S DISEASE
     Route: 048

REACTIONS (3)
  - Nausea [Recovered/Resolved]
  - Extra dose administered [Recovered/Resolved]
  - Dyskinesia [Recovered/Resolved]
